FAERS Safety Report 6713772-8 (Version None)
Quarter: 2010Q2

REPORT INFORMATION
  Report Type: 
  Country: None (occurrence: None)
  Receive Date: 20100504
  Receipt Date: 20100416
  Transmission Date: 20101027
  Serious: Yes (Hospitalization, Other)
  Sender: FDA-Public Use
  Company Number: 230001M09SWE

PATIENT
  Sex: Female

DRUGS (6)
  1. REBIF [Suspect]
     Indication: DRUG USE FOR UNKNOWN INDICATION
     Dosage: 22 MCG; 44 MCG; 44 MCG; 22 MCG;
     Dates: end: 20060101
  2. REBIF [Suspect]
     Indication: DRUG USE FOR UNKNOWN INDICATION
     Dosage: 22 MCG; 44 MCG; 44 MCG; 22 MCG;
     Dates: end: 20060101
  3. REBIF [Suspect]
     Indication: DRUG USE FOR UNKNOWN INDICATION
     Dosage: 22 MCG; 44 MCG; 44 MCG; 22 MCG;
     Dates: start: 20070101
  4. PULMICORT [Concomitant]
  5. BRICANYL [Concomitant]
  6. MYCOSTATIN [Concomitant]

REACTIONS (6)
  - ALVEOLITIS [None]
  - COUGH [None]
  - DYSPNOEA [None]
  - HEPATIC ENZYME INCREASED [None]
  - HYPERSENSITIVITY [None]
  - LUNG CONSOLIDATION [None]
